FAERS Safety Report 13254585 (Version 1)
Quarter: 2017Q1

REPORT INFORMATION
  Report Type: Spontaneous
  Country: BR (occurrence: BR)
  Receive Date: 20170221
  Receipt Date: 20170221
  Transmission Date: 20170428
  Serious: Yes (Hospitalization, Other)
  Sender: FDA-Public Use
  Company Number: BR-AMGEN-BRASP2017013324

PATIENT
  Age: 54 Year
  Sex: Male
  Weight: 86 kg

DRUGS (12)
  1. HEMOFOL [Concomitant]
     Dosage: 5000 IU, BID
     Route: 058
     Dates: start: 20161218, end: 20170114
  2. ACYCLOVIR. [Concomitant]
     Active Substance: ACYCLOVIR
     Indication: PROPHYLAXIS
     Dosage: 400 MG, BID
     Route: 048
     Dates: start: 20161218, end: 20170101
  3. BACTRIM [Concomitant]
     Active Substance: SULFAMETHOXAZOLE\TRIMETHOPRIM
     Indication: PROPHYLAXIS
     Dosage: 1 TABLET (160 MG TRIMETHOPRIM+ 800 MG SULFAMETHOXAZOLE), QOD
     Route: 048
     Dates: start: 20161218, end: 20170114
  4. KYPROLIS [Suspect]
     Active Substance: CARFILZOMIB
     Dosage: 36 MG/M2, UNK
     Route: 042
     Dates: start: 20170113, end: 20170114
  5. ALLEGRA [Concomitant]
     Active Substance: FEXOFENADINE HYDROCHLORIDE
     Indication: PRODUCT USED FOR UNKNOWN INDICATION
     Dosage: 120 MG, ONCE
     Route: 048
     Dates: start: 20161225, end: 20161230
  6. KYPROLIS [Suspect]
     Active Substance: CARFILZOMIB
     Dosage: 20 MG/M2, UNK
     Route: 042
     Dates: start: 20170106, end: 20170107
  7. ALLOPURINOL. [Concomitant]
     Active Substance: ALLOPURINOL
     Dosage: 100 MG, ONCE
     Route: 048
     Dates: start: 20161220, end: 20170114
  8. PIPERACILLIN AND TAZOBACTAM [Concomitant]
     Active Substance: PIPERACILLIN SODIUM\TAZOBACTAM SODIUM
     Dosage: 1 BOTTLE (PIPERACILLIN SODIUM 2G + TAZOBACTAM SODIUM 0.25 G), TID
     Route: 042
     Dates: start: 20161225, end: 20161226
  9. KYPROLIS [Suspect]
     Active Substance: CARFILZOMIB
     Indication: PLASMA CELL MYELOMA
     Dosage: 34 MG, QD
     Route: 042
     Dates: start: 20161222, end: 20161223
  10. TYLENOL [Concomitant]
     Active Substance: ACETAMINOPHEN
     Dosage: 750 MG, UNK ACM (AT PHYSICIAN DISCRETION)
     Route: 048
     Dates: start: 20161229, end: 20161229
  11. NEXIUM [Concomitant]
     Active Substance: ESOMEPRAZOLE MAGNESIUM
     Dosage: 20 MG, BID
     Route: 048
     Dates: start: 20161219, end: 20170114
  12. KYPROLIS [Suspect]
     Active Substance: CARFILZOMIB
     Dosage: 56 MG/M2, UNK
     Route: 042

REACTIONS (4)
  - Pneumonitis [Recovered/Resolved]
  - Renal failure [Recovered/Resolved]
  - Pleural effusion [Recovered/Resolved]
  - Acute respiratory failure [Recovered/Resolved]

NARRATIVE: CASE EVENT DATE: 20161225
